FAERS Safety Report 10766104 (Version 2)
Quarter: 2015Q2

REPORT INFORMATION
  Report Type: Spontaneous
  Country: US (occurrence: US)
  Receive Date: 20150205
  Receipt Date: 20150415
  Transmission Date: 20150821
  Serious: Yes (Hospitalization, Other)
  Sender: FDA-Public Use
  Company Number: US-PFIZER INC-2015048810

PATIENT
  Age: 69 Year
  Sex: Female

DRUGS (2)
  1. LYRICA [Suspect]
     Active Substance: PREGABALIN
     Indication: NEURALGIA
     Dosage: UNK
  2. EFFEXOR XR [Suspect]
     Active Substance: VENLAFAXINE HYDROCHLORIDE
     Indication: BIPOLAR DISORDER
     Dosage: UNK
     Dates: start: 1998

REACTIONS (11)
  - Arthralgia [Not Recovered/Not Resolved]
  - Ankle fracture [Unknown]
  - Tendon injury [Unknown]
  - Upper limb fracture [Unknown]
  - Staphylococcal infection [Unknown]
  - Ligament rupture [Unknown]
  - Arthritis [Unknown]
  - Pain in extremity [Not Recovered/Not Resolved]
  - Lower limb fracture [Unknown]
  - Diabetic neuropathy [Unknown]
  - Road traffic accident [Unknown]
